FAERS Safety Report 19361447 (Version 1)
Quarter: 2021Q2

REPORT INFORMATION
  Report Type: Spontaneous
  Country: US (occurrence: US)
  Receive Date: 20210601
  Receipt Date: 20210601
  Transmission Date: 20210717
  Serious: Yes (Death, Hospitalization)
  Sender: FDA-Public Use
  Company Number: US-AMNEAL PHARMACEUTICALS-2021-AMRX-01846

PATIENT
  Sex: Male

DRUGS (1)
  1. PHENYTOIN SODIUM. [Suspect]
     Active Substance: PHENYTOIN SODIUM
     Indication: SEIZURE
     Dosage: 5 CAPSULES, BEDTIME
     Route: 065
     Dates: start: 2019, end: 202009

REACTIONS (3)
  - Intentional overdose [Unknown]
  - Fall [Fatal]
  - Completed suicide [Fatal]

NARRATIVE: CASE EVENT DATE: 20200901
